FAERS Safety Report 16388894 (Version 1)
Quarter: 2019Q2

REPORT INFORMATION
  Report Type: Spontaneous
  Country: JP (occurrence: JP)
  Receive Date: 20190604
  Receipt Date: 20190604
  Transmission Date: 20190711
  Serious: Yes (Other)
  Sender: FDA-Public Use
  Company Number: JP-OTSUKA-2019_004928AA

PATIENT
  Age: 5 Decade
  Sex: Female

DRUGS (4)
  1. SAMSCA [Suspect]
     Active Substance: TOLVAPTAN
     Indication: CONGENITAL CYSTIC KIDNEY DISEASE
     Dosage: 120MG/DAY
     Route: 048
     Dates: start: 20180712, end: 20190130
  2. SAMSCA [Suspect]
     Active Substance: TOLVAPTAN
     Dosage: 90MG/DAY
     Route: 048
     Dates: start: 20180607, end: 20180711
  3. DIOVAN [Concomitant]
     Active Substance: VALSARTAN
     Indication: PRODUCT USED FOR UNKNOWN INDICATION
     Dosage: 60 MG, QD
     Route: 048
  4. SAMSCA [Suspect]
     Active Substance: TOLVAPTAN
     Dosage: 60MG/DAY
     Route: 048
     Dates: start: 20180510, end: 20180606

REACTIONS (1)
  - Hepatic function abnormal [Recovered/Resolved]

NARRATIVE: CASE EVENT DATE: 20190130
